FAERS Safety Report 10862313 (Version 1)
Quarter: 2015Q1

REPORT INFORMATION
  Report Type: Spontaneous
  Country: NL (occurrence: None)
  Receive Date: 20150219
  Receipt Date: 20150219
  Transmission Date: 20150721
  Serious: Yes (Other)
  Sender: FDA-Public Use
  Company Number: NL2014GSK016043

PATIENT
  Age: 35 Year
  Sex: Male
  Weight: 72 kg

DRUGS (2)
  1. KIVEXA (ABACAVIR SULPHATE, LAMIVUDINE) [Concomitant]
  2. TIVICAY [Suspect]
     Active Substance: DOLUTEGRAVIR SODIUM
     Indication: HIV INFECTION
     Dates: start: 20140815, end: 20141106

REACTIONS (5)
  - CD4 lymphocytes decreased [None]
  - Leukopenia [None]
  - Skin disorder [None]
  - Rash [None]
  - Liver disorder [None]
